FAERS Safety Report 9292016 (Version 1)
Quarter: 2013Q2

REPORT INFORMATION
  Report Type: Spontaneous
  Country: US (occurrence: US)
  Receive Date: 20130516
  Receipt Date: 20130516
  Transmission Date: 20140414
  Serious: Yes (Other)
  Sender: FDA-Public Use
  Company Number: US-PFIZER INC-2013150818

PATIENT
  Sex: Male

DRUGS (2)
  1. AMIODARONE HCL [Suspect]
     Dosage: 200 MG, TWICE DAILY
  2. AMIODARONE HCL [Suspect]
     Dosage: 200 MG, ONCE DAILY

REACTIONS (2)
  - Pulmonary fibrosis [Unknown]
  - Heart rate decreased [Recovered/Resolved]
